FAERS Safety Report 7247096-X (Version None)
Quarter: 2011Q1

REPORT INFORMATION
  Report Type: 
  Country: None (occurrence: None)
  Receive Date: 20110127
  Receipt Date: 20100409
  Transmission Date: 20110831
  Serious: No
  Sender: FDA-Public Use
  Company Number: US-BAUSCH-2010BL001984

PATIENT
  Age: 53 Year
  Sex: Female

DRUGS (4)
  1. OPTIVE EYE DROPS [Concomitant]
     Indication: BLEPHARITIS
  2. ALAWAY [Suspect]
     Indication: BLEPHARITIS
     Route: 047
     Dates: start: 20100408, end: 20100408
  3. ERYTHROMYCIN [Concomitant]
     Indication: BLEPHARITIS
     Route: 061
     Dates: start: 20090101
  4. ALAWAY [Suspect]
     Indication: OFF LABEL USE
     Route: 047
     Dates: start: 20100408, end: 20100408

REACTIONS (2)
  - LACRIMATION INCREASED [None]
  - EYE IRRITATION [None]
